FAERS Safety Report 14476575 (Version 3)
Quarter: 2018Q3

REPORT INFORMATION
  Report Type: Spontaneous
  Country: US (occurrence: US)
  Receive Date: 20180201
  Receipt Date: 20180823
  Transmission Date: 20181010
  Serious: No
  Sender: FDA-Public Use
  Company Number: US-SA-2017SA232957

PATIENT
  Age: 83 Year
  Sex: Female

DRUGS (2)
  1. PRALUENT [Suspect]
     Active Substance: ALIROCUMAB
     Indication: BLOOD CHOLESTEROL
     Dosage: 75 MG,QOW
     Route: 058
     Dates: start: 2017
  2. ALIROCUMAB PREFILLED PEN [Suspect]
     Active Substance: ALIROCUMAB
     Indication: BLOOD CHOLESTEROL
     Dosage: 75 MG, QOW
     Dates: start: 2017

REACTIONS (4)
  - Drug dose omission [Unknown]
  - Drug dose omission [Unknown]
  - Food poisoning [Unknown]
  - Device use issue [Unknown]

NARRATIVE: CASE EVENT DATE: 2017
